FAERS Safety Report 7646974-7 (Version None)
Quarter: 2011Q3

REPORT INFORMATION
  Report Type: 
  Country: None (occurrence: None)
  Receive Date: 20110801
  Receipt Date: 20110718
  Transmission Date: 20111222
  Serious: Yes (Other)
  Sender: FDA-Public Use
  Company Number: FR-ELI_LILLY_AND_COMPANY-FR201005005511

PATIENT
  Age: 57 Year
  Sex: Female
  Weight: 65 kg

DRUGS (6)
  1. CHONDROSULF [Concomitant]
     Indication: OSTEOARTHRITIS
     Dosage: 400 MG, UNK
     Dates: start: 20090901
  2. GELSEMIUM [Concomitant]
     Indication: OSTEOARTHRITIS
     Dosage: UNK
     Dates: start: 20090901
  3. SPASMAG [Concomitant]
     Indication: OSTEOARTHRITIS
     Dosage: UNK
     Dates: start: 20090901
  4. BIOCARDE [Concomitant]
     Indication: OSTEOARTHRITIS
     Dosage: UNK
     Dates: start: 20090901
  5. RALOXIFENE [Suspect]
     Indication: OSTEOPOROSIS
     Dosage: UNK, UNKNOWN
     Route: 048
     Dates: start: 20080201, end: 20100401
  6. CEMAFLAVONE [Concomitant]
     Indication: OSTEOARTHRITIS
     Dosage: UNK
     Dates: start: 20090901

REACTIONS (2)
  - LARGE GRANULAR LYMPHOCYTOSIS [None]
  - DEEP VEIN THROMBOSIS [None]
